FAERS Safety Report 4926083-8 (Version None)
Quarter: 2006Q1

REPORT INFORMATION
  Report Type: 
  Country: None (occurrence: None)
  Receive Date: 20060228
  Receipt Date: 20050812
  Transmission Date: 20060701
  Serious: Yes (Other)
  Sender: FDA-Public Use
  Company Number: US-GLAXOSMITHKLINE-A0570046A

PATIENT
  Age: 45 Year
  Sex: Female
  Weight: 62.7 kg

DRUGS (4)
  1. LAMICTAL [Suspect]
     Indication: BIPOLAR DISORDER
     Dosage: 25MG PER DAY
     Route: 048
     Dates: start: 20050810, end: 20050812
  2. EFFEXOR [Concomitant]
     Indication: BIPOLAR DISORDER
     Dosage: 75MG IN THE MORNING
     Route: 048
     Dates: start: 20050721
  3. XANAX [Concomitant]
     Indication: BIPOLAR DISORDER
     Dosage: 1MG THREE TIMES PER DAY
     Route: 048
     Dates: start: 20050721
  4. ALLEGRA [Concomitant]
     Indication: SEASONAL ALLERGY

REACTIONS (5)
  - BLOOD PRESSURE INCREASED [None]
  - BLOOD URINE PRESENT [None]
  - DIARRHOEA [None]
  - HEART RATE INCREASED [None]
  - RASH [None]
